FAERS Safety Report 14175165 (Version 2)
Quarter: 2017Q4

REPORT INFORMATION
  Report Type: Report from Study
  Country: US (occurrence: US)
  Receive Date: 20171109
  Receipt Date: 20171207
  Transmission Date: 20180321
  Serious: Yes (Other)
  Sender: FDA-Public Use
  Company Number: US-JNJFOC-20170907540

PATIENT
  Sex: Male

DRUGS (1)
  1. IMBRUVICA [Suspect]
     Active Substance: IBRUTINIB
     Indication: MANTLE CELL LYMPHOMA
     Route: 065
     Dates: start: 20131119

REACTIONS (6)
  - Disease progression [Unknown]
  - Middle ear effusion [Unknown]
  - Dysgeusia [Recovering/Resolving]
  - Aptyalism [Unknown]
  - Pharyngeal oedema [Recovering/Resolving]
  - Hypoacusis [Unknown]
